FAERS Safety Report 10433836 (Version 2)
Quarter: 2014Q3

REPORT INFORMATION
  Report Type: Spontaneous
  Country: US (occurrence: US)
  Receive Date: 20140905
  Receipt Date: 20140905
  Transmission Date: 20150326
  Serious: Yes (Death, Hospitalization)
  Sender: FDA-Public Use
  Company Number: US-GLAXOSMITHKLINE-A0742046A

PATIENT
  Sex: Male

DRUGS (15)
  1. ANDRODERM [Concomitant]
     Active Substance: TESTOSTERONE
  2. AMARYL [Concomitant]
     Active Substance: GLIMEPIRIDE
  3. NIACIN. [Concomitant]
     Active Substance: NIACIN
  4. OMEPRAZOLE. [Concomitant]
     Active Substance: OMEPRAZOLE
  5. METFORMIN [Concomitant]
     Active Substance: METFORMIN HYDROCHLORIDE
  6. NABUMETONE. [Concomitant]
     Active Substance: NABUMETONE
  7. CIALIS [Concomitant]
     Active Substance: TADALAFIL
  8. LEVITRA [Concomitant]
     Active Substance: VARDENAFIL HYDROCHLORIDE TRIHYDRATE
  9. VIAGRA [Concomitant]
     Active Substance: SILDENAFIL CITRATE
  10. GLUCOSAMINE CHONDROITIN [Concomitant]
     Active Substance: CHONDROITIN SULFATE (BOVINE)\GLUCOSAMINE HYDROCHLORIDE
  11. AVANDIA [Suspect]
     Active Substance: ROSIGLITAZONE MALEATE
     Indication: DIABETES MELLITUS
     Dosage: 8MG PER DAY
     Route: 048
     Dates: start: 200206, end: 20060822
  12. DIAZEPAM. [Concomitant]
     Active Substance: DIAZEPAM
  13. ASPIRIN. [Concomitant]
     Active Substance: ASPIRIN
  14. PRILOSEC [Concomitant]
     Active Substance: OMEPRAZOLE MAGNESIUM
  15. NIASPAN [Concomitant]
     Active Substance: NIACIN

REACTIONS (7)
  - Cardiac failure congestive [Unknown]
  - Myocardial infarction [Fatal]
  - Atrial flutter [Unknown]
  - Hypertensive heart disease [Fatal]
  - Pulmonary oedema [Unknown]
  - Coronary artery disease [Unknown]
  - Atrial fibrillation [Unknown]
